FAERS Safety Report 7029658-8 (Version None)
Quarter: 2010Q4

REPORT INFORMATION
  Report Type: 
  Country: None (occurrence: None)
  Receive Date: 20101005
  Receipt Date: 20100924
  Transmission Date: 20110411
  Serious: Yes (Other)
  Sender: FDA-Public Use
  Company Number: JP-MERCK-1009USA01013

PATIENT
  Age: 74 Year
  Sex: Female
  Weight: 44 kg

DRUGS (5)
  1. JANUVIA [Suspect]
     Indication: HYPERGLYCAEMIA
     Route: 048
     Dates: start: 20100513
  2. GLYBURIDE [Concomitant]
     Indication: HYPERGLYCAEMIA
     Route: 048
     Dates: start: 19960624
  3. METFORMIN HCL [Concomitant]
     Indication: HYPERGLYCAEMIA
     Route: 048
     Dates: start: 20011227
  4. AZELASTINE HCL [Concomitant]
     Indication: HYPERTENSION
     Route: 048
     Dates: start: 20050526
  5. TENORMIN [Concomitant]
     Indication: HYPERTENSION
     Route: 048
     Dates: start: 19870618

REACTIONS (1)
  - ATRIAL FLUTTER [None]
